FAERS Safety Report 25143791 (Version 2)
Quarter: 2025Q2

REPORT INFORMATION
  Report Type: Spontaneous
  Country: JP (occurrence: JP)
  Receive Date: 20250401
  Receipt Date: 20250407
  Transmission Date: 20250717
  Serious: Yes (Death, Other)
  Sender: GILEAD
  Company Number: JP-GILEAD-2025-0707638

PATIENT
  Age: 99 Year
  Sex: Male

DRUGS (20)
  1. VEKLURY [Suspect]
     Active Substance: REMDESIVIR
     Indication: COVID-19
     Route: 041
     Dates: start: 20250312, end: 20250312
  2. VEKLURY [Suspect]
     Active Substance: REMDESIVIR
     Route: 041
     Dates: start: 20250313, end: 20250316
  3. VEKLURY [Suspect]
     Active Substance: REMDESIVIR
     Route: 041
     Dates: start: 20250318, end: 20250319
  4. AMPICILLIN SODIUM\SULBACTAM SODIUM [Concomitant]
     Active Substance: AMPICILLIN SODIUM\SULBACTAM SODIUM
     Dates: start: 20250312, end: 20250316
  5. PIPERACILLIN SODIUM\TAZOBACTAM SODIUM [Concomitant]
     Active Substance: PIPERACILLIN SODIUM\TAZOBACTAM SODIUM
     Dates: start: 20250317
  6. DEXAMETHASONE SODIUM PHOSPHATE [Concomitant]
     Active Substance: DEXAMETHASONE SODIUM PHOSPHATE
  7. LACTEC D [CALCIUM CHLORIDE DIHYDRATE;GLUCOSE;POTASSIUM CHLORIDE;SODIUM [Concomitant]
  8. SOLITA-T1 [Concomitant]
  9. ELIQUIS [Concomitant]
     Active Substance: APIXABAN
  10. SILODOSIN [Concomitant]
     Active Substance: SILODOSIN
  11. SPIRONOLACTONE [Concomitant]
     Active Substance: SPIRONOLACTONE
  12. LANSOPRAZOLE [Concomitant]
     Active Substance: LANSOPRAZOLE
  13. FUROSEMIDE [Concomitant]
     Active Substance: FUROSEMIDE
  14. ALFACALCIDOL [Concomitant]
     Active Substance: ALFACALCIDOL
  15. MIYA-BM [Concomitant]
     Active Substance: CLOSTRIDIUM BUTYRICUM SPORES STRAIN M-55
  16. RAMELTEON [Concomitant]
     Active Substance: RAMELTEON
  17. DAYVIGO [Concomitant]
     Active Substance: LEMBOREXANT
  18. MAGNESIUM OXIDE [Concomitant]
     Active Substance: MAGNESIUM OXIDE
  19. SODIUM PICOSULFATE MONOHYDRATE [Concomitant]
     Active Substance: SODIUM PICOSULFATE MONOHYDRATE
  20. BISACODYL [Concomitant]
     Active Substance: BISACODYL

REACTIONS (4)
  - COVID-19 pneumonia [Fatal]
  - Pneumonia bacterial [Unknown]
  - COVID-19 [Unknown]
  - Blood pressure decreased [Unknown]

NARRATIVE: CASE EVENT DATE: 20250301
